FAERS Safety Report 9929946 (Version 1)
Quarter: 2014Q1

REPORT INFORMATION
  Report Type: Spontaneous
  Country: US (occurrence: US)
  Receive Date: 20140227
  Receipt Date: 20140227
  Transmission Date: 20141002
  Serious: No
  Sender: FDA-Public Use
  Company Number: US-GILEAD-2014-0095341

PATIENT
  Age: 38 Year
  Sex: Male

DRUGS (3)
  1. STRIBILD [Suspect]
     Indication: HIV INFECTION
     Route: 065
  2. MULTIVITAMIN                       /07504101/ [Concomitant]
  3. CREATINE [Concomitant]

REACTIONS (3)
  - Sexual dysfunction [Unknown]
  - Weight increased [Unknown]
  - Blood creatinine increased [Unknown]
